FAERS Safety Report 10263171 (Version 2)
Quarter: 2014Q3

REPORT INFORMATION
  Report Type: Report from Study
  Country: BR (occurrence: BR)
  Receive Date: 20140626
  Receipt Date: 20140711
  Transmission Date: 20150326
  Serious: Yes (Other)
  Sender: FDA-Public Use
  Company Number: BR-ABBVIE-14P-020-1252799-00

PATIENT
  Sex: Male
  Weight: 88 kg

DRUGS (2)
  1. LIPIDIL [Suspect]
     Active Substance: FENOFIBRATE
     Indication: BLOOD CHOLESTEROL
     Dosage: 1 TABLET AFTER DINNER; DAILY DOSE:160 MILLIGRAM
     Route: 048
     Dates: start: 2009, end: 201110
  2. ALL OTHER THERAPEUTIC PRODUCTS [Concomitant]
     Active Substance: UNSPECIFIED INGREDIENT
     Indication: HYPOTHYROIDISM

REACTIONS (2)
  - Metastases to lymph nodes [Unknown]
  - Prostate cancer [Recovering/Resolving]
